FAERS Safety Report 5249823-X (Version None)
Quarter: 2007Q1

REPORT INFORMATION
  Report Type: 
  Country: None (occurrence: None)
  Receive Date: 20061201
  Receipt Date: 20060822
  Transmission Date: 20070707
  Serious: No
  Sender: FDA-Public Use
  Company Number: 2006PV019889

PATIENT
  Age: 59 Year
  Sex: Female
  Weight: 87.0906 kg

DRUGS (12)
  1. BYETTA [Suspect]
     Indication: DIABETES MELLITUS NON-INSULIN-DEPENDENT
     Dosage: 5 MCG; BID; SC
     Route: 058
     Dates: start: 20060601
  2. NOVOLOG [Concomitant]
  3. AVANDIA [Concomitant]
  4. METFORMIN HCL [Concomitant]
  5. GLIPIZIDE [Concomitant]
  6. ZETIA [Concomitant]
  7. ATENOLOL [Concomitant]
  8. LIPITOR [Concomitant]
  9. URIC K [Concomitant]
  10. ARTHROTEC [Concomitant]
  11. PAXIL [Concomitant]
  12. CYMBALTA [Concomitant]

REACTIONS (10)
  - ABDOMINAL PAIN UPPER [None]
  - DECREASED APPETITE [None]
  - DIARRHOEA [None]
  - DIZZINESS [None]
  - EATING DISORDER SYMPTOM [None]
  - FEELING ABNORMAL [None]
  - NAUSEA [None]
  - OBSESSIVE THOUGHTS [None]
  - VOMITING [None]
  - WEIGHT DECREASED [None]
